FAERS Safety Report 5763974-2 (Version None)
Quarter: 2008Q2

REPORT INFORMATION
  Report Type: 
  Country: None (occurrence: None)
  Receive Date: 20080606
  Receipt Date: 20080606
  Transmission Date: 20081010
  Serious: Yes (Death, Hospitalization)
  Sender: FDA-Public Use
  Company Number: None

PATIENT
  Sex: Female
  Weight: 44.7 kg

DRUGS (11)
  1. PACLITAXEL 85MG/ M2 [Suspect]
     Indication: PANCREATIC CARCINOMA
     Dosage: 85MG/M2 Q 21 DAYS IV
     Route: 042
     Dates: start: 20080507
  2. PTK787/ZK222584 500MG [Suspect]
     Dosage: 500MG DAILY ORAL
     Route: 048
     Dates: start: 20080511, end: 20080527
  3. AMYLASE-LIPASE-PROTEASE [PANCREASE] [Concomitant]
  4. DIPHENOXYLATE-ATROPINE [LOMOTIL] [Concomitant]
  5. DILAUDID [Concomitant]
  6. ATIVAN [Concomitant]
  7. ONDANSETRON HCL [ZOFRAN] [Concomitant]
  8. OXYCONTIN [Concomitant]
  9. RANITIDINE HCL [Concomitant]
  10. SERTRALINE [Concomitant]
  11. OMEPRAZOLE [Concomitant]

REACTIONS (4)
  - ANAEMIA [None]
  - GASTROINTESTINAL HAEMORRHAGE [None]
  - NEOPLASM PROGRESSION [None]
  - UNRESPONSIVE TO STIMULI [None]
